FAERS Safety Report 9476539 (Version 1)
Quarter: 2013Q3

REPORT INFORMATION
  Report Type: Spontaneous
  Country: US (occurrence: None)
  Receive Date: 20130823
  Receipt Date: 20130823
  Transmission Date: 20140515
  Serious: No
  Sender: FDA-Public Use
  Company Number: None

PATIENT
  Age: 22 Year
  Sex: Female
  Weight: 56.25 kg

DRUGS (2)
  1. NUVARING [Suspect]
     Dosage: 0.12-0.015 MG / 24 HR
  2. ORTHO-EVRA [Suspect]

REACTIONS (4)
  - Mood swings [None]
  - Depression [None]
  - Lethargy [None]
  - Libido decreased [None]
